FAERS Safety Report 7601381-8 (Version None)
Quarter: 2011Q2

REPORT INFORMATION
  Report Type: 
  Country: None (occurrence: None)
  Receive Date: 20110629
  Receipt Date: 20110616
  Transmission Date: 20111010
  Serious: Yes (Other)
  Sender: FDA-Public Use
  Company Number: 2011ST000145

PATIENT
  Sex: Female
  Weight: 50 kg

DRUGS (1)
  1. ABELCET [Suspect]
     Indication: BONE MARROW FAILURE
     Dosage: 150 MG;QD;IV
     Route: 042
     Dates: start: 20110209, end: 20110217

REACTIONS (5)
  - BLOOD PRESSURE DECREASED [None]
  - CYANOSIS [None]
  - HEART RATE INCREASED [None]
  - PYREXIA [None]
  - CHILLS [None]
